FAERS Safety Report 9612626 (Version 4)
Quarter: 2014Q1

REPORT INFORMATION
  Report Type: Spontaneous
  Country: US (occurrence: US)
  Receive Date: 20131010
  Receipt Date: 20140224
  Transmission Date: 20141002
  Serious: Yes (Other)
  Sender: FDA-Public Use
  Company Number: US-AMGEN-USASP2013069929

PATIENT
  Age: 57 Year
  Sex: Female
  Weight: 73.92 kg

DRUGS (5)
  1. PROLIA [Suspect]
     Indication: OSTEOPOROSIS
     Dosage: 60 MG, Q6MO
     Route: 065
     Dates: start: 201205
  2. SYNTHROID [Concomitant]
  3. LIPITOR [Concomitant]
  4. VIVELLE DOT [Concomitant]
  5. VITAMIN D                          /00107901/ [Concomitant]

REACTIONS (4)
  - Impaired healing [Unknown]
  - Bone loss [Unknown]
  - Tooth abscess [Unknown]
  - Inappropriate schedule of drug administration [Unknown]
